FAERS Safety Report 21720651 (Version 1)
Quarter: 2022Q4

REPORT INFORMATION
  Report Type: Spontaneous
  Country: US (occurrence: US)
  Receive Date: 20221213
  Receipt Date: 20221213
  Transmission Date: 20230113
  Serious: No
  Sender: FDA-Public Use
  Company Number: US-STRIDES ARCOLAB LIMITED-2022SP013924

PATIENT
  Age: 71 Year
  Sex: Female

DRUGS (27)
  1. PREDNISOLONE [Suspect]
     Active Substance: PREDNISOLONE
     Indication: Pruritus
     Dosage: UNK
     Route: 065
  2. PREDNISOLONE [Suspect]
     Active Substance: PREDNISOLONE
     Indication: Eczema
  3. METHOTREXATE [Suspect]
     Active Substance: METHOTREXATE
     Indication: Pruritus
     Dosage: 15 MILLIGRAM, ONCE A WEEK
     Route: 065
  4. METHOTREXATE [Suspect]
     Active Substance: METHOTREXATE
     Indication: Eczema
  5. CYCLOSPORINE [Suspect]
     Active Substance: CYCLOSPORINE
     Indication: Pruritus
     Dosage: 100 MILLIGRAM, BID
     Route: 065
  6. CYCLOSPORINE [Suspect]
     Active Substance: CYCLOSPORINE
     Indication: Eczema
  7. GABAPENTIN [Suspect]
     Active Substance: GABAPENTIN
     Indication: Pruritus
     Dosage: 300 MILLIGRAM, TID FOR 1 MONTH
     Route: 065
  8. GABAPENTIN [Suspect]
     Active Substance: GABAPENTIN
     Indication: Eczema
  9. DOXEPIN HYDROCHLORIDE [Suspect]
     Active Substance: DOXEPIN HYDROCHLORIDE
     Indication: Pruritus
     Dosage: 20 MILLIGRAM PER DAY
     Route: 065
  10. DOXEPIN HYDROCHLORIDE [Suspect]
     Active Substance: DOXEPIN HYDROCHLORIDE
     Indication: Eczema
     Dosage: 150 MILLIGRAM PER DAY
     Route: 065
  11. AMITRIPTYLINE [Suspect]
     Active Substance: AMITRIPTYLINE
     Indication: Pruritus
     Dosage: 100 MILLIGRAM PER DAY
     Route: 065
  12. AMITRIPTYLINE [Suspect]
     Active Substance: AMITRIPTYLINE
     Indication: Eczema
  13. DUPIXENT [Suspect]
     Active Substance: DUPILUMAB
     Indication: Pruritus
     Dosage: UNK
     Route: 065
  14. DUPIXENT [Suspect]
     Active Substance: DUPILUMAB
     Indication: Eczema
  15. TERBINAFINE [Suspect]
     Active Substance: TERBINAFINE
     Indication: Pruritus
     Dosage: 200 MILLIGRAM PER DAY FOR 2 WEEKS
     Route: 065
  16. TERBINAFINE [Suspect]
     Active Substance: TERBINAFINE
     Indication: Eczema
  17. VALACYCLOVIR [Suspect]
     Active Substance: VALACYCLOVIR HYDROCHLORIDE
     Indication: Pruritus
     Dosage: 1 GRAM, TID
     Route: 065
  18. VALACYCLOVIR [Suspect]
     Active Substance: VALACYCLOVIR HYDROCHLORIDE
     Indication: Eczema
  19. ACITRETIN [Suspect]
     Active Substance: ACITRETIN
     Indication: Pruritus
     Dosage: 25 MILLIGRAM PER DAY
     Route: 065
  20. ACITRETIN [Suspect]
     Active Substance: ACITRETIN
     Indication: Eczema
  21. MIRTAZAPINE [Suspect]
     Active Substance: MIRTAZAPINE
     Indication: Pruritus
     Dosage: 45 MILLIGRAM PER DAY
     Route: 065
  22. MIRTAZAPINE [Suspect]
     Active Substance: MIRTAZAPINE
     Indication: Eczema
  23. PAROXETINE [Concomitant]
     Active Substance: PAROXETINE
     Indication: Product used for unknown indication
     Dosage: 20 MILLIGRAM PER DAY
     Route: 065
  24. LEVOTHYROXINE [Concomitant]
     Active Substance: LEVOTHYROXINE
     Indication: Product used for unknown indication
     Dosage: 100 MICROGRAM PER DAY
     Route: 065
  25. ALENDRONATE [Concomitant]
     Active Substance: ALENDRONATE SODIUM
     Indication: Product used for unknown indication
     Dosage: 70 MILLIGRAM PER DAY
     Route: 065
  26. OMEPRAZOLE [Concomitant]
     Active Substance: OMEPRAZOLE
     Indication: Product used for unknown indication
     Dosage: UNK
     Route: 065
  27. HYDROXYZINE [Concomitant]
     Active Substance: HYDROXYZINE HYDROCHLORIDE
     Indication: Product used for unknown indication
     Dosage: 25 MILLIGRAM, AT BED TIME
     Route: 065

REACTIONS (3)
  - Drug ineffective [Unknown]
  - Therapy partial responder [Unknown]
  - Off label use [Unknown]
